FAERS Safety Report 18676415 (Version 1)
Quarter: 2020Q4

REPORT INFORMATION
  Report Type: Spontaneous
  Country: US (occurrence: US)
  Receive Date: 20201229
  Receipt Date: 20201229
  Transmission Date: 20210114
  Serious: Yes (Hospitalization, Other)
  Sender: FDA-Public Use
  Company Number: US-ADVANZ PHARMA-202012011157

PATIENT

DRUGS (7)
  1. METHOTREXATE SODIUM. [Suspect]
     Active Substance: METHOTREXATE SODIUM
     Indication: RHEUMATOID ARTHRITIS
     Dosage: 25 MG, WEEKLY
     Route: 065
     Dates: start: 2007
  2. TRAMADOL. [Suspect]
     Active Substance: TRAMADOL
     Dosage: 50 MG, THREE OR FOUR TIMES A DAY
     Route: 065
     Dates: start: 2007
  3. CALCIUM [Suspect]
     Active Substance: CALCIUM
     Dosage: 1600 MG, QD
     Route: 065
     Dates: start: 2007
  4. VITAMIN D [Suspect]
     Active Substance: VITAMIN D NOS
     Dosage: 400 UNITS BID
     Route: 065
     Dates: start: 2007
  5. HYDROXYCHLOROQUINE [Suspect]
     Active Substance: HYDROXYCHLOROQUINE
     Dosage: 200 MG, BID
     Route: 065
     Dates: start: 2008
  6. FOLIC ACID. [Suspect]
     Active Substance: FOLIC ACID
     Dosage: 1 MG, BID
     Route: 065
     Dates: start: 2008
  7. ENBREL [Suspect]
     Active Substance: ETANERCEPT
     Indication: RHEUMATOID ARTHRITIS
     Dosage: 25 MG, WEEKLY
     Route: 065
     Dates: start: 2008

REACTIONS (2)
  - Hypersensitivity [Unknown]
  - Cystitis [Recovered/Resolved]
